FAERS Safety Report 25169464 (Version 2)
Quarter: 2025Q2

REPORT INFORMATION
  Report Type: Spontaneous
  Country: US (occurrence: US)
  Receive Date: 20250407
  Receipt Date: 20250417
  Transmission Date: 20250717
  Serious: Yes (Life-Threatening, Other)
  Sender: LUNDBECK
  Company Number: US-LUNDBECK-DKLU4012832

PATIENT
  Age: 37 Year
  Sex: Male

DRUGS (2)
  1. ONFI [Suspect]
     Active Substance: CLOBAZAM
     Indication: Generalised tonic-clonic seizure
     Dosage: 20 MILLIGRAM
  2. OMEPRAZOLE [Suspect]
     Active Substance: OMEPRAZOLE
     Indication: Product used for unknown indication

REACTIONS (8)
  - Acute respiratory failure [Recovered/Resolved]
  - Pneumonia [Recovered/Resolved]
  - Sepsis [Recovered/Resolved]
  - Influenza [Recovered/Resolved]
  - Urinary retention [Unknown]
  - Sedation [Unknown]
  - Urinary tract infection [Unknown]
  - Drug interaction [Unknown]

NARRATIVE: CASE EVENT DATE: 20231101
